FAERS Safety Report 22044217 (Version 6)
Quarter: 2023Q2

REPORT INFORMATION
  Report Type: Spontaneous
  Country: JP (occurrence: JP)
  Receive Date: 20230228
  Receipt Date: 20230424
  Transmission Date: 20230722
  Serious: Yes (Hospitalization)
  Sender: FDA-Public Use
  Company Number: JP-ONO-2023JP004452

PATIENT
  Age: 67 Year
  Sex: Male

DRUGS (11)
  1. BRAFTOVI [Suspect]
     Active Substance: ENCORAFENIB
     Indication: Colon cancer
     Dosage: 300 MG, EVERYDAY (DOUBLET-THERAPY)
     Route: 048
     Dates: start: 20211013, end: 20211121
  2. MEKTOVI [Suspect]
     Active Substance: BINIMETINIB
     Indication: Colon cancer
     Dosage: 60 MG, EVERYDAY (ADVANCED TRIPLET-THERAPY)
     Route: 048
     Dates: start: 20211110, end: 20211121
  3. ERBITUX [Suspect]
     Active Substance: CETUXIMAB
     Indication: Colon cancer
     Dosage: 400 MG/M2 (DOUBLET-THERAPY)
     Route: 065
     Dates: start: 20211013, end: 20211013
  4. ERBITUX [Suspect]
     Active Substance: CETUXIMAB
     Dosage: 250 MG/M2, QW
     Route: 065
     Dates: start: 20211020, end: 20211110
  5. BETAMETHASONE [Concomitant]
     Active Substance: BETAMETHASONE
     Dosage: UNK
     Route: 048
  6. NEXIUM [Concomitant]
     Active Substance: ESOMEPRAZOLE MAGNESIUM
     Dosage: UNK
     Route: 048
  7. NAPROXEN [Concomitant]
     Active Substance: NAPROXEN
     Dosage: UNK
     Route: 048
  8. FUROSEMIDE [Concomitant]
     Active Substance: FUROSEMIDE
     Dosage: UNK
     Route: 048
  9. SENNOSIDES A AND B [Concomitant]
     Active Substance: SENNOSIDES A AND B
     Dosage: UNK
     Route: 048
  10. TRAMADOL HYDROCHLORIDE [Concomitant]
     Active Substance: TRAMADOL HYDROCHLORIDE
     Dosage: UNK
     Route: 048
  11. SILODOSIN OD [Concomitant]
     Dosage: UNK (TABLET, ORALLY DISINTEGRATING)
     Route: 048

REACTIONS (6)
  - Rash [Recovering/Resolving]
  - Purpura [Unknown]
  - Blister [Unknown]
  - Skin erosion [Unknown]
  - Skin ulcer [Unknown]
  - Underdose [Unknown]

NARRATIVE: CASE EVENT DATE: 20211110
